FAERS Safety Report 8226306-6 (Version None)
Quarter: 2012Q1

REPORT INFORMATION
  Report Type: 
  Country: None (occurrence: None)
  Receive Date: 20120321
  Receipt Date: 20120313
  Transmission Date: 20120608
  Serious: Yes (Hospitalization, Other)
  Sender: FDA-Public Use
  Company Number: US-MERCK-1111USA00737

PATIENT
  Sex: Female
  Weight: 55 kg

DRUGS (5)
  1. FOSAMAX [Suspect]
     Indication: OSTEOPOROSIS
     Route: 048
     Dates: start: 20000920, end: 20020407
  2. FOSAMAX [Suspect]
     Indication: PROPHYLAXIS
     Route: 048
     Dates: start: 20000920, end: 20020407
  3. PREDNISONE [Concomitant]
     Indication: RHEUMATOID ARTHRITIS
     Route: 065
     Dates: start: 19970101
  4. FOSAMAX [Suspect]
     Route: 048
     Dates: start: 20030408, end: 20081007
  5. FOSAMAX [Suspect]
     Route: 048
     Dates: start: 20030408, end: 20081007

REACTIONS (21)
  - HYPERTENSION [None]
  - PROCEDURAL NAUSEA [None]
  - RIB FRACTURE [None]
  - GASTROOESOPHAGEAL REFLUX DISEASE [None]
  - HEART RATE INCREASED [None]
  - BLOOD PRESSURE SYSTOLIC DECREASED [None]
  - PROCEDURAL VOMITING [None]
  - ARTHROPATHY [None]
  - BRONCHIOLITIS [None]
  - RHEUMATOID ARTHRITIS [None]
  - SECONDARY ADRENOCORTICAL INSUFFICIENCY [None]
  - FALL [None]
  - PEMPHIGUS [None]
  - FOOT FRACTURE [None]
  - FEMUR FRACTURE [None]
  - VITAMIN D DEFICIENCY [None]
  - THYROID NEOPLASM [None]
  - ADVERSE EVENT [None]
  - WEIGHT DECREASED [None]
  - PSORIASIS [None]
  - INTERSTITIAL LUNG DISEASE [None]
